FAERS Safety Report 6499150-8 (Version None)
Quarter: 2009Q4

REPORT INFORMATION
  Report Type: 
  Country: None (occurrence: None)
  Receive Date: 20091215
  Receipt Date: 20091211
  Transmission Date: 20100525
  Serious: Yes (Other)
  Sender: FDA-Public Use
  Company Number: IT-WYE-H04714508

PATIENT
  Sex: Female
  Weight: 59 kg

DRUGS (2)
  1. GEMTUZUMAB OZOGAMICIN [Suspect]
     Indication: ACUTE MYELOID LEUKAEMIA
     Dosage: 3.42MG; FREQUENCY UNKNOWN; WITH A CUMULATIVE DOSE GIVEN 34.2 MG
     Route: 065
     Dates: start: 20070929, end: 20080414
  2. METHYLPREDNISOLONE [Concomitant]
     Route: 048

REACTIONS (1)
  - VASCULITIS [None]
